FAERS Safety Report 9401060 (Version 2)
Quarter: 2013Q3

REPORT INFORMATION
  Report Type: Spontaneous
  Country: BR (occurrence: BR)
  Receive Date: 20130715
  Receipt Date: 20130804
  Transmission Date: 20140515
  Serious: Yes (Hospitalization, Other)
  Sender: FDA-Public Use
  Company Number: PHHY2013BR074593

PATIENT
  Age: 71 Year
  Sex: Male
  Weight: 70 kg

DRUGS (2)
  1. FORASEQ [Suspect]
     Indication: EMPHYSEMA
     Dosage: 1 DF, BID (1 CAPSULE IN MORNING AND 1 AT NIGHT WITHOUT EPISODES)
  2. FORASEQ [Suspect]
     Indication: ALLERGIC BRONCHITIS

REACTIONS (5)
  - Bronchitis [Recovered/Resolved]
  - Allergic bronchitis [Not Recovered/Not Resolved]
  - Sinusitis [Not Recovered/Not Resolved]
  - Hypersensitivity [Not Recovered/Not Resolved]
  - Device malfunction [Unknown]
